FAERS Safety Report 6038750-6 (Version None)
Quarter: 2009Q1

REPORT INFORMATION
  Report Type: 
  Country: None (occurrence: None)
  Receive Date: 20090115
  Receipt Date: 20080211
  Transmission Date: 20090719
  Serious: No
  Sender: FDA-Public Use
  Company Number: US-ABBOTT-08P-163-0438151-00

PATIENT
  Sex: Female

DRUGS (3)
  1. ADVICOR [Suspect]
     Indication: DRUG USE FOR UNKNOWN INDICATION
     Dosage: 1000/20 MILLIGRAM
  2. ACETYLSALICYLIC ACID SRT [Suspect]
     Indication: FLUSHING
  3. ACETYLSALICYLIC ACID SRT [Suspect]

REACTIONS (2)
  - CONTUSION [None]
  - FLUSHING [None]
